FAERS Safety Report 13617545 (Version 5)
Quarter: 2020Q4

REPORT INFORMATION
  Report Type: Spontaneous
  Country: US (occurrence: US)
  Receive Date: 20170606
  Receipt Date: 20201216
  Transmission Date: 20210113
  Serious: No
  Sender: FDA-Public Use
  Company Number: US-SA-2017SA038584

PATIENT

DRUGS (8)
  1. LANTUS [Suspect]
     Active Substance: INSULIN GLARGINE
     Dosage: 12 IU,QD
     Route: 058
     Dates: start: 20170204
  2. LANTUS [Suspect]
     Active Substance: INSULIN GLARGINE
     Dosage: 20 IU, QD
     Route: 065
  3. NORVASC [Concomitant]
     Active Substance: AMLODIPINE BESYLATE
     Dosage: 5 MG,QD
     Route: 065
     Dates: start: 20160330
  4. IBUPROFEN. [Concomitant]
     Active Substance: IBUPROFEN
     Indication: PAIN
  5. OMEGA 3 [FISH OIL] [Concomitant]
     Active Substance: FISH OIL
     Dosage: 4 DF,QD
     Route: 048
     Dates: start: 20071002
  6. LANTUS [Suspect]
     Active Substance: INSULIN GLARGINE
     Indication: TYPE 2 DIABETES MELLITUS
     Dosage: 12 IU,QD
     Route: 058
     Dates: start: 20160315
  7. ASPIRIN [ACETYLSALICYLIC ACID] [Concomitant]
     Active Substance: ASPIRIN
     Dosage: UNK UNK,QD
     Route: 048
  8. IBUPROFEN. [Concomitant]
     Active Substance: IBUPROFEN
     Indication: INFLAMMATION
     Dosage: 200 MG
     Route: 065

REACTIONS (4)
  - Blood glucose increased [Recovered/Resolved]
  - Device operational issue [Unknown]
  - Incorrect dose administered by device [Unknown]
  - Blood glucose increased [Unknown]

NARRATIVE: CASE EVENT DATE: 20170104
